FAERS Safety Report 9014033 (Version 1)
Quarter: 2013Q1

REPORT INFORMATION
  Report Type: Spontaneous
  Country: AR (occurrence: AR)
  Receive Date: 20130115
  Receipt Date: 20130115
  Transmission Date: 20140127
  Serious: Yes (Death)
  Sender: FDA-Public Use
  Company Number: AR-ROCHE-1179820

PATIENT
  Sex: Male

DRUGS (1)
  1. LUCENTIS [Suspect]
     Indication: VISUAL ACUITY REDUCED
     Route: 050

REACTIONS (2)
  - Infarction [Fatal]
  - Drug ineffective [Unknown]
